FAERS Safety Report 17163472 (Version 1)
Quarter: 2019Q4

REPORT INFORMATION
  Report Type: Spontaneous
  Country: IE (occurrence: IE)
  Receive Date: 20191217
  Receipt Date: 20191217
  Transmission Date: 20200122
  Serious: Yes (Other)
  Sender: FDA-Public Use
  Company Number: IE-TEVA-2019-IE-1152399

PATIENT
  Age: 23 Year
  Sex: Male

DRUGS (3)
  1. OLANZAPINE (G) [Concomitant]
     Active Substance: OLANZAPINE
     Dosage: NOCTE - THIS WAS BEING DOWN TITRATED AS PART OF A SWITCH FROM OLANZAPINE TO RISPERIDONE.
  2. OLANZAPINE (G) [Concomitant]
     Active Substance: OLANZAPINE
     Dosage: ON 01/NOV/2019 THE PATIENT WAS ON OLANZAPINE 20MG AND HAD BEEN ON THIS MEDICATION FOR SEVERAL WEEKS.
     Dates: start: 2019
  3. RISPERIDONE (G) [Suspect]
     Active Substance: RISPERIDONE
     Route: 065

REACTIONS (2)
  - Atrioventricular block second degree [Unknown]
  - Atrioventricular block first degree [Unknown]

NARRATIVE: CASE EVENT DATE: 20191107
